FAERS Safety Report 14553937 (Version 1)
Quarter: 2018Q1

REPORT INFORMATION
  Report Type: Spontaneous
  Country: CN (occurrence: CN)
  Receive Date: 20180220
  Receipt Date: 20180220
  Transmission Date: 20180509
  Serious: Yes (Hospitalization, Disabling, Other)
  Sender: FDA-Public Use
  Company Number: CN-GILEAD-2018-0321298

PATIENT
  Age: 57 Year
  Sex: Male
  Weight: 66 kg

DRUGS (2)
  1. ADEFOVIR DIPIVOXIL. [Suspect]
     Active Substance: ADEFOVIR DIPIVOXIL
     Indication: CHRONIC HEPATITIS B
     Dosage: 10 MG, QD
     Route: 065
     Dates: start: 200905
  2. LAMIVUDINE. [Suspect]
     Active Substance: LAMIVUDINE
     Indication: CHRONIC HEPATITIS B
     Dosage: 10 MG, QD
     Route: 065
     Dates: start: 200203

REACTIONS (20)
  - Fanconi syndrome acquired [Recovering/Resolving]
  - Blood alkaline phosphatase increased [Unknown]
  - Sneezing [Unknown]
  - Back pain [Recovering/Resolving]
  - Osteomalacia [Recovered/Resolved]
  - Bone pain [Unknown]
  - Foot fracture [Recovering/Resolving]
  - Osteoporosis [Unknown]
  - Pain [Unknown]
  - Hypouricaemia [Unknown]
  - Blood uric acid increased [Unknown]
  - Cough [Unknown]
  - Urine phosphorus increased [Unknown]
  - Blood creatinine increased [Unknown]
  - Movement disorder [Unknown]
  - Compression fracture [Unknown]
  - Drug resistance [Unknown]
  - Metabolic acidosis [Unknown]
  - Bone density decreased [Unknown]
  - Hypophosphataemia [Recovered/Resolved]
